FAERS Safety Report 10181426 (Version 3)
Quarter: 2014Q4

REPORT INFORMATION
  Report Type: Report from Study
  Country: BR (occurrence: BR)
  Receive Date: 20140519
  Receipt Date: 20141027
  Transmission Date: 20150528
  Serious: Yes (Other)
  Sender: FDA-Public Use
  Company Number: BR-BRISTOL-MYERS SQUIBB COMPANY-20734901

PATIENT
  Age: 55 Year
  Sex: Female

DRUGS (1)
  1. ORENCIA [Suspect]
     Active Substance: ABATACEPT
     Indication: RHEUMATOID ARTHRITIS
     Dosage: 2 VIALS; INTERRUPTED: MAR2014?LAST DOSE ON: 07OCT14.?2VIALS OF 250MG

REACTIONS (2)
  - Arthralgia [Recovering/Resolving]
  - Chondropathy [Recovered/Resolved]

NARRATIVE: CASE EVENT DATE: 20140403
